FAERS Safety Report 16508985 (Version 1)
Quarter: 2019Q3

REPORT INFORMATION
  Report Type: Other
  Country: GB (occurrence: GB)
  Receive Date: 20190702
  Receipt Date: 20190702
  Transmission Date: 20191004
  Serious: Yes (Hospitalization, Other)
  Sender: FDA-Public Use
  Company Number: GB-DEXPHARM-20190435

PATIENT
  Age: 92 Year
  Sex: Female

DRUGS (8)
  1. CALCICHEW-D3 FORTE [Concomitant]
     Active Substance: CALCIUM\CHOLECALCIFEROL
  2. LOPERAMIDE HYDROCHLORIDE. [Concomitant]
     Active Substance: LOPERAMIDE HYDROCHLORIDE
     Indication: DIARRHOEA
     Route: 048
  3. ASPIRIN. [Concomitant]
     Active Substance: ASPIRIN
  4. RANITIDINE. [Suspect]
     Active Substance: RANITIDINE
  5. DONEPEZIL. [Suspect]
     Active Substance: DONEPEZIL
  6. SIMVASTATIN. [Suspect]
     Active Substance: SIMVASTATIN
  7. FERROUS FUMARATE [Suspect]
     Active Substance: FERROUS FUMARATE
  8. DULOXETINE HYDROCHLORIDE. [Suspect]
     Active Substance: DULOXETINE HYDROCHLORIDE

REACTIONS (1)
  - Colitis microscopic [Recovering/Resolving]
